FAERS Safety Report 5310675-0 (Version None)
Quarter: 2007Q2

REPORT INFORMATION
  Report Type: 
  Country: None (occurrence: None)
  Receive Date: 20070428
  Receipt Date: 20070418
  Transmission Date: 20071010
  Serious: Yes (Other)
  Sender: FDA-Public Use
  Company Number: US-PFIZER INC-2007031241

PATIENT

DRUGS (1)
  1. LYRICA [Suspect]
     Indication: OFF LABEL USE

REACTIONS (4)
  - CONFUSIONAL STATE [None]
  - CONSTIPATION [None]
  - DEMENTIA [None]
  - VISION BLURRED [None]
